FAERS Safety Report 21608142 (Version 1)
Quarter: 2022Q4

REPORT INFORMATION
  Report Type: Spontaneous
  Country: FR (occurrence: FR)
  Receive Date: 20221117
  Receipt Date: 20221117
  Transmission Date: 20230112
  Serious: Yes (Hospitalization, Other)
  Sender: FDA-Public Use
  Company Number: None

PATIENT

DRUGS (7)
  1. LAMICTAL [Suspect]
     Active Substance: LAMOTRIGINE
     Indication: Epilepsy
     Dosage: 100 MG (2 TABLETS PER DAY)
     Route: 048
     Dates: start: 20210705, end: 20210707
  2. LAMICTAL [Suspect]
     Active Substance: LAMOTRIGINE
     Dosage: 50 MG (2 TABLETS PER DAY)
     Route: 048
     Dates: start: 20210610, end: 20210705
  3. COMIRNATY [Suspect]
     Active Substance: TOZINAMERAN
     Indication: COVID-19 immunisation
     Dosage: 1 DF
     Route: 030
     Dates: start: 20210612, end: 20210612
  4. CYAMEMAZINE [Concomitant]
     Active Substance: CYAMEMAZINE
     Indication: Delusion
     Dosage: UNK
     Route: 048
     Dates: start: 20210621
  5. CETIRIZINE HYDROCHLORIDE [Concomitant]
     Active Substance: CETIRIZINE HYDROCHLORIDE
     Indication: Product used for unknown indication
     Dosage: 10 MG (1 TABLET IN THE EVENING)
     Route: 048
     Dates: start: 20210707
  6. PRAZEPAM [Concomitant]
     Active Substance: PRAZEPAM
     Indication: Delusion
     Dosage: UNK
     Route: 048
     Dates: start: 20210622
  7. OLANZAPINE [Concomitant]
     Active Substance: OLANZAPINE
     Indication: Product used for unknown indication
     Dosage: 20 MG (20 MG IN THE EVENING, FOR MORE THAN 2 MONTHS)
     Route: 048

REACTIONS (1)
  - Drug reaction with eosinophilia and systemic symptoms [Recovered/Resolved]

NARRATIVE: CASE EVENT DATE: 20210706
